FAERS Safety Report 21057358 (Version 1)
Quarter: 2022Q3

REPORT INFORMATION
  Report Type: Spontaneous
  Country: BR (occurrence: BR)
  Receive Date: 20220708
  Receipt Date: 20220708
  Transmission Date: 20221027
  Serious: Yes (Death, Other)
  Sender: FDA-Public Use
  Company Number: BR-SUN PHARMACEUTICAL INDUSTRIES LTD-2022R1-343438

PATIENT
  Age: 22 Year
  Sex: Female

DRUGS (1)
  1. DEXAMETHASONE [Suspect]
     Active Substance: DEXAMETHASONE
     Indication: Haemorrhage intracranial
     Dosage: UNK (40 MG)
     Route: 065

REACTIONS (2)
  - Disease progression [Fatal]
  - Therapeutic response decreased [Unknown]
